FAERS Safety Report 5186413-1 (Version None)
Quarter: 2006Q4

REPORT INFORMATION
  Report Type: 
  Country: None (occurrence: None)
  Receive Date: 20061213
  Receipt Date: 20061130
  Transmission Date: 20070319
  Serious: Yes (Other)
  Sender: FDA-Public Use
  Company Number: 2006146686

PATIENT
  Age: 24 Year
  Sex: Female

DRUGS (2)
  1. DEPO-PROVERA [Suspect]
     Indication: CONTRACEPTION
     Dosage: 150 MG (150 MG, 1ST INJECTION), INTRAMUSCULAR; 150 MG, LAST INJECTION), INTRAMUSCULAR
     Route: 030
     Dates: start: 20040101, end: 20040101
  2. DEPO-PROVERA [Suspect]
     Indication: CONTRACEPTION
     Dosage: 150 MG (150 MG, 1ST INJECTION), INTRAMUSCULAR; 150 MG, LAST INJECTION), INTRAMUSCULAR
     Route: 030
     Dates: start: 20060101, end: 20060101

REACTIONS (1)
  - CARDIAC DISORDER [None]
